FAERS Safety Report 10747422 (Version 3)
Quarter: 2015Q2

REPORT INFORMATION
  Report Type: Spontaneous
  Country: US (occurrence: US)
  Receive Date: 20150129
  Receipt Date: 20150430
  Transmission Date: 20150821
  Serious: No
  Sender: FDA-Public Use
  Company Number: US-BIOGENIDEC-2015BI009273

PATIENT
  Age: 29 Year
  Sex: Female

DRUGS (2)
  1. TRAMADOL [Concomitant]
     Active Substance: TRAMADOL
     Indication: PREMEDICATION
  2. TYSABRI [Suspect]
     Active Substance: NATALIZUMAB
     Indication: MULTIPLE SCLEROSIS
     Route: 042
     Dates: start: 20150115

REACTIONS (20)
  - Vision blurred [Recovered/Resolved]
  - Crying [Recovered/Resolved]
  - Vitreous floaters [Recovered/Resolved]
  - Burning sensation [Recovered/Resolved]
  - Headache [Recovered/Resolved]
  - Visual field defect [Not Recovered/Not Resolved]
  - Flushing [Unknown]
  - Confusional state [Recovered/Resolved]
  - Thermohypoaesthesia [Unknown]
  - Depression [Not Recovered/Not Resolved]
  - Abulia [Not Recovered/Not Resolved]
  - Aura [Recovered/Resolved]
  - Photopsia [Recovered/Resolved]
  - Dysgeusia [Recovered/Resolved]
  - Hiccups [Not Recovered/Not Resolved]
  - Anger [Recovered/Resolved]
  - Thinking abnormal [Unknown]
  - Dizziness [Recovered/Resolved]
  - Disturbance in attention [Not Recovered/Not Resolved]
  - Coordination abnormal [Recovered/Resolved]

NARRATIVE: CASE EVENT DATE: 20150115
